FAERS Safety Report 5852651-5 (Version None)
Quarter: 2008Q3

REPORT INFORMATION
  Report Type: 
  Country: None (occurrence: None)
  Receive Date: 20080821
  Receipt Date: 20080813
  Transmission Date: 20090109
  Serious: Yes (Hospitalization)
  Sender: FDA-Public Use
  Company Number: B0533019A

PATIENT
  Age: 87 Year
  Sex: Female

DRUGS (5)
  1. AUGMENTIN '125' [Suspect]
     Indication: DRUG USE FOR UNKNOWN INDICATION
     Route: 065
     Dates: start: 20080604, end: 20080612
  2. PREVISCAN [Suspect]
     Indication: DRUG USE FOR UNKNOWN INDICATION
     Route: 065
     Dates: start: 20080529, end: 20080614
  3. ROCEPHIN [Concomitant]
     Indication: DRUG USE FOR UNKNOWN INDICATION
     Route: 065
     Dates: start: 20080528, end: 20080604
  4. TARDYFERON [Concomitant]
     Indication: DRUG USE FOR UNKNOWN INDICATION
     Route: 065
     Dates: start: 20080605
  5. CALCIDIA [Concomitant]
     Indication: DRUG USE FOR UNKNOWN INDICATION
     Route: 065
     Dates: start: 20080606

REACTIONS (9)
  - DIARRHOEA [None]
  - HYPOKALAEMIA [None]
  - INFLAMMATION [None]
  - MACROCYTOSIS [None]
  - PRURITUS [None]
  - RASH MACULO-PAPULAR [None]
  - RASH MORBILLIFORM [None]
  - SKIN PLAQUE [None]
  - TOXIC SKIN ERUPTION [None]
